FAERS Safety Report 16693615 (Version 1)
Quarter: 2019Q3

REPORT INFORMATION
  Report Type: Spontaneous
  Country: US (occurrence: US)
  Receive Date: 20190812
  Receipt Date: 20190812
  Transmission Date: 20191004
  Serious: No
  Sender: FDA-Public Use
  Company Number: US-AMNEAL PHARMACEUTICALS-2019AMN00274

PATIENT
  Sex: Male

DRUGS (3)
  1. CYMBALTA [Concomitant]
     Active Substance: DULOXETINE HYDROCHLORIDE
     Indication: PRODUCT USED FOR UNKNOWN INDICATION
     Dosage: UNK
  2. GABAPENTIN. [Concomitant]
     Active Substance: GABAPENTIN
     Indication: AFFECTIVE DISORDER
     Dosage: UNK
  3. TRAMADOL HYDROCHLORIDE. [Suspect]
     Active Substance: TRAMADOL HYDROCHLORIDE
     Indication: NERVE INJURY
     Dosage: 50 MG, 2X/DAY (IN THE MORNING AND AT NIGHT)
     Route: 048
     Dates: start: 2016

REACTIONS (5)
  - Mood altered [Not Recovered/Not Resolved]
  - Product use in unapproved indication [Unknown]
  - Gait disturbance [Not Recovered/Not Resolved]
  - Product substitution issue [Unknown]
  - Pain [Unknown]

NARRATIVE: CASE EVENT DATE: 2016
